FAERS Safety Report 12575717 (Version 2)
Quarter: 2016Q3

REPORT INFORMATION
  Report Type: Report from Study
  Country: US (occurrence: US)
  Receive Date: 20160720
  Receipt Date: 20160804
  Transmission Date: 20161109
  Serious: Yes (Hospitalization)
  Sender: FDA-Public Use
  Company Number: US-ACTELION-A-US2016-139593

PATIENT
  Age: 47 Year
  Sex: Female
  Weight: 69.84 kg

DRUGS (2)
  1. UPTRAVI [Suspect]
     Active Substance: SELEXIPAG
     Indication: PULMONARY ARTERIAL HYPERTENSION
     Dosage: 600 MCG, BID
     Route: 048
  2. UPTRAVI [Suspect]
     Active Substance: SELEXIPAG
     Dosage: UNK
     Route: 048
     Dates: start: 20160219

REACTIONS (6)
  - Pain in extremity [Unknown]
  - Pruritus [Unknown]
  - Arthralgia [Unknown]
  - Autoimmune disorder [Unknown]
  - Rash generalised [Unknown]
  - Hypertension [Unknown]
